FAERS Safety Report 7233304-8 (Version None)
Quarter: 2011Q1

REPORT INFORMATION
  Report Type: 
  Country: None (occurrence: None)
  Receive Date: 20110119
  Receipt Date: 20110114
  Transmission Date: 20110831
  Serious: Yes (Hospitalization, Other)
  Sender: FDA-Public Use
  Company Number: FR-ROCHE-718458

PATIENT
  Sex: Male
  Weight: 68 kg

DRUGS (10)
  1. PERMIXON [Concomitant]
     Dosage: DRUG: PERMIXON 100
  2. RIBAVIRIN [Suspect]
     Dosage: FREQUENCY: DAILY, PERMANENTLY DISCONTNUED.
     Route: 048
     Dates: start: 20091020, end: 20100721
  3. LYSANXIA [Concomitant]
  4. XATRAL [Concomitant]
     Dosage: TDD: 1
  5. MOVICOL [Concomitant]
     Dosage: TDD: 1
  6. PEGINTERFERON ALFA-2A [Suspect]
     Dosage: PERMANENTLY DISCONTINUED.
     Route: 058
     Dates: start: 20091020, end: 20100721
  7. HALDOL [Concomitant]
     Dosage: 50 MG/MONTH
  8. HYDROSOL POLYVITAMINE [Concomitant]
  9. LEPTICUR [Concomitant]
  10. BUPRENORPHINE [Concomitant]
     Dosage: BUPRENORPHINE 4 MG, TDD 1

REACTIONS (7)
  - GENERAL PHYSICAL CONDITION ABNORMAL [None]
  - SUICIDAL IDEATION [None]
  - STAPHYLOCOCCAL INFECTION [None]
  - DELUSION [None]
  - DYSPHAGIA [None]
  - NEUROLEPTIC MALIGNANT SYNDROME [None]
  - DEPRESSION [None]
